FAERS Safety Report 6110114-6 (Version None)
Quarter: 2009Q1

REPORT INFORMATION
  Report Type: 
  Country: None (occurrence: None)
  Receive Date: 20090310
  Receipt Date: 20090227
  Transmission Date: 20090719
  Serious: Yes (Hospitalization)
  Sender: FDA-Public Use
  Company Number: US-JNJFOC-20090300804

PATIENT
  Age: 11 Year
  Sex: Male

DRUGS (2)
  1. REMICADE [Suspect]
     Dosage: WEEK 0 AND 2
     Route: 042
  2. REMICADE [Suspect]
     Indication: CROHN'S DISEASE
     Route: 042

REACTIONS (2)
  - ANXIETY [None]
  - DYSPNOEA [None]
